FAERS Safety Report 22297785 (Version 1)
Quarter: 2023Q2

REPORT INFORMATION
  Report Type: Other
  Country: FR (occurrence: FR)
  Receive Date: 20230509
  Receipt Date: 20230509
  Transmission Date: 20230722
  Serious: Yes (Hospitalization)
  Sender: FDA-Public Use
  Company Number: None

PATIENT
  Age: 81 Year
  Sex: Male

DRUGS (1)
  1. PADCEV [Suspect]
     Active Substance: ENFORTUMAB VEDOTIN-EJFV
     Indication: Bladder cancer
     Dosage: 1.25 MG/KG, CYCLIC (D1, D8, D15 28-DAY CYCLE)
     Route: 042
     Dates: start: 20221010, end: 20221205

REACTIONS (4)
  - Pollakiuria [Unknown]
  - General physical health deterioration [Unknown]
  - Escherichia infection [Unknown]
  - Depression [Unknown]

NARRATIVE: CASE EVENT DATE: 20221101
